FAERS Safety Report 24652424 (Version 1)
Quarter: 2024Q4

REPORT INFORMATION
  Report Type: Spontaneous
  Country: US (occurrence: None)
  Receive Date: 20241121
  Receipt Date: 20241121
  Transmission Date: 20250115
  Serious: Yes (Death)
  Sender: Public
  Company Number: None

PATIENT
  Sex: Female

DRUGS (1)
  1. TRACLEER [Suspect]
     Active Substance: BOSENTAN
     Indication: Pulmonary hypertension
     Dosage: FREQUENCY : TWICE A DAY;?
     Route: 048
     Dates: start: 20240809, end: 20241029

REACTIONS (5)
  - Upper respiratory tract infection [None]
  - Apnoea [None]
  - Pulse absent [None]
  - Cyanosis [None]
  - Cardiac arrest [None]

NARRATIVE: CASE EVENT DATE: 20241029
